FAERS Safety Report 18880809 (Version 1)
Quarter: 2021Q1

REPORT INFORMATION
  Report Type: Spontaneous
  Country: US (occurrence: US)
  Receive Date: 20210212
  Receipt Date: 20210212
  Transmission Date: 20210420
  Serious: No
  Sender: FDA-Public Use
  Company Number: US-LUPIN PHARMACEUTICALS INC.-2021-01368

PATIENT
  Sex: Male
  Weight: 96.15 kg

DRUGS (1)
  1. CLOBETASOL PROPIONATE TOPICAL SOLUTION USP, 0.05 % [Suspect]
     Active Substance: CLOBETASOL PROPIONATE
     Indication: PRURITUS
     Dosage: ONE TIME IN A WEEK
     Route: 061

REACTIONS (4)
  - Product communication issue [Unknown]
  - Incorrect product administration duration [Unknown]
  - No adverse event [Unknown]
  - Inappropriate schedule of product administration [Unknown]
